FAERS Safety Report 23332029 (Version 1)
Quarter: 2023Q4

REPORT INFORMATION
  Report Type: Spontaneous
  Country: US (occurrence: None)
  Receive Date: 20231222
  Receipt Date: 20231222
  Transmission Date: 20240110
  Serious: Yes (Hospitalization)
  Sender: FDA-Public Use
  Company Number: 2023A288472

PATIENT
  Age: 85 Year
  Sex: Male

DRUGS (2)
  1. SEROQUEL [Suspect]
     Active Substance: QUETIAPINE FUMARATE
     Route: 048
  2. NUPLAZID [Suspect]
     Active Substance: PIMAVANSERIN TARTRATE
     Indication: Parkinson^s disease
     Route: 048

REACTIONS (10)
  - COVID-19 [Unknown]
  - Fall [Unknown]
  - Cellulitis [Unknown]
  - Infection [Unknown]
  - Confusional state [Unknown]
  - Balance disorder [Unknown]
  - Asthenia [Unknown]
  - Hypoacusis [Unknown]
  - Memory impairment [Unknown]
  - Somnolence [Unknown]

NARRATIVE: CASE EVENT DATE: 20231001
